FAERS Safety Report 17887431 (Version 1)
Quarter: 2020Q2

REPORT INFORMATION
  Report Type: Other
  Country: US (occurrence: US)
  Receive Date: 20200611
  Receipt Date: 20200611
  Transmission Date: 20200714
  Serious: Yes (Other)
  Sender: FDA-Public Use
  Company Number: US-MLV PHARMA LLC-000004

PATIENT
  Age: 72 Year
  Sex: Female
  Weight: 87.5 kg

DRUGS (2)
  1. TRIAMCINOLONE [Suspect]
     Active Substance: TRIAMCINOLONE
     Indication: ARTHRITIS
     Dosage: INTRAARTICULAR LEFT HIP INJECTION OF 80MG
     Route: 014
  2. LIDOCAINE. [Suspect]
     Active Substance: LIDOCAINE
     Indication: ARTHRITIS
     Dosage: 3ML OF 1% LIDOCAINE
     Route: 014

REACTIONS (2)
  - Disease progression [Recovered/Resolved]
  - Osteonecrosis [Recovered/Resolved]
